FAERS Safety Report 5842688-4 (Version None)
Quarter: 2008Q3

REPORT INFORMATION
  Report Type: 
  Country: None (occurrence: None)
  Receive Date: 20080812
  Receipt Date: 20080731
  Transmission Date: 20090109
  Serious: Yes (Hospitalization)
  Sender: FDA-Public Use
  Company Number: JP-AMGEN-US300376

PATIENT
  Age: 64 Year
  Sex: Female

DRUGS (5)
  1. ENBREL [Suspect]
     Indication: RHEUMATOID ARTHRITIS
     Dosage: 25 MG 2X/WEEK; LYOPHYLIZED
     Route: 058
     Dates: start: 20070701, end: 20080730
  2. JUVELA [Concomitant]
     Dosage: UNKNOWN
     Route: 048
  3. THYRADIN [Concomitant]
     Dosage: UNKNOWN
     Route: 048
  4. PREDONINE [Concomitant]
     Dosage: UNKNOWN
     Route: 048
  5. LOXONIN [Concomitant]
     Dosage: UNKNOWN
     Route: 048

REACTIONS (1)
  - PITUITARY TUMOUR [None]
